FAERS Safety Report 8065400-X (Version None)
Quarter: 2012Q1

REPORT INFORMATION
  Report Type: 
  Country: None (occurrence: None)
  Receive Date: 20120124
  Receipt Date: 20120119
  Transmission Date: 20120608
  Serious: Yes (Hospitalization)
  Sender: FDA-Public Use
  Company Number: US-AMGEN-USASP2012004374

PATIENT
  Age: 54 Year
  Sex: Female
  Weight: 91 kg

DRUGS (5)
  1. PEGFILGRASTIM [Suspect]
     Indication: BREAST CANCER
     Dosage: UNK
     Dates: start: 20110601
  2. PACLITAXEL [Suspect]
     Indication: BREAST CANCER
     Dosage: 80 MG/M2, PER CHEMO REGIM
     Route: 042
     Dates: start: 20110601
  3. BEVACIZUMAB [Suspect]
     Indication: BREAST CANCER
     Dosage: 10 MG/KG, PER CHEMO REGIM
     Route: 042
     Dates: start: 20110601
  4. DOXORUBICIN HCL [Suspect]
     Indication: BREAST CANCER
     Dosage: 60 MG/M2, PER CHEMO REGIM
     Route: 042
     Dates: start: 20110601
  5. CYCLOPHOSPHAMIDE [Suspect]
     Indication: BREAST CANCER
     Dosage: 600 MG/M2, PER CHEMO REGIM
     Route: 042
     Dates: start: 20110601

REACTIONS (1)
  - URINARY TRACT INFECTION [None]
